FAERS Safety Report 5214990-0 (Version None)
Quarter: 2007Q1

REPORT INFORMATION
  Report Type: 
  Country: None (occurrence: None)
  Receive Date: 20070122
  Receipt Date: 20070110
  Transmission Date: 20070707
  Serious: Yes (Hospitalization, Other)
  Sender: FDA-Public Use
  Company Number: US-PFIZER INC-2006007101

PATIENT
  Sex: Male

DRUGS (10)
  1. ZYVOX [Suspect]
     Indication: STAPHYLOCOCCAL INFECTION
     Dosage: TEXT:UNKNOWN
     Route: 048
     Dates: start: 20051121, end: 20051123
  2. RIFAMPIN [Interacting]
     Indication: STAPHYLOCOCCAL INFECTION
     Dosage: TEXT:UNKNOWN-FREQ:UNKNOWN
     Route: 065
  3. BENICAR [Concomitant]
     Route: 065
  4. ZYRTEC [Concomitant]
     Route: 065
  5. FLONASE [Concomitant]
     Route: 065
  6. LANTUS [Concomitant]
     Route: 065
  7. INSULIN [Concomitant]
     Route: 065
  8. DIFLUCAN [Concomitant]
     Route: 065
  9. GLYBURIDE [Concomitant]
     Route: 065
  10. METFORMIN HCL [Concomitant]
     Route: 065

REACTIONS (3)
  - DRUG INTERACTION [None]
  - DYSPEPSIA [None]
  - STEVENS-JOHNSON SYNDROME [None]
